FAERS Safety Report 18949701 (Version 1)
Quarter: 2021Q1

REPORT INFORMATION
  Report Type: Spontaneous
  Country: US (occurrence: US)
  Receive Date: 20210227
  Receipt Date: 20210227
  Transmission Date: 20210420
  Serious: No
  Sender: FDA-Public Use
  Company Number: US-ROCHE-2594482

PATIENT
  Sex: Male

DRUGS (1)
  1. XOLAIR [Suspect]
     Active Substance: OMALIZUMAB
     Indication: IDIOPATHIC URTICARIA
     Dosage: PRE?FILLED SYRINGE 150 MG/ML
     Route: 058
     Dates: start: 20161019

REACTIONS (2)
  - Fatigue [Unknown]
  - Myalgia [Unknown]
